FAERS Safety Report 19973290 (Version 1)
Quarter: 2021Q4

REPORT INFORMATION
  Report Type: Spontaneous
  Country: US (occurrence: US)
  Receive Date: 20211019
  Receipt Date: 20211019
  Transmission Date: 20220303
  Serious: No
  Sender: FDA-Public Use
  Company Number: 2021A760306

PATIENT

DRUGS (1)
  1. CRESTOR [Suspect]
     Active Substance: ROSUVASTATIN CALCIUM
     Dosage: DOSE UNKNWON UNKNOWN
     Route: 048

REACTIONS (1)
  - Joint stiffness [Unknown]
